FAERS Safety Report 5706941-7 (Version None)
Quarter: 2008Q2

REPORT INFORMATION
  Report Type: 
  Country: None (occurrence: None)
  Receive Date: 20080416
  Receipt Date: 20080414
  Transmission Date: 20081010
  Serious: Yes (Other)
  Sender: FDA-Public Use
  Company Number: US-RB-000747-08

PATIENT
  Age: 55 Year
  Sex: Female

DRUGS (3)
  1. SUBOXONE [Suspect]
     Route: 060
     Dates: start: 20060101
  2. ANTIDEPRESSANT [Concomitant]
     Indication: DEPRESSION
     Dosage: DOSAGE UNKNOWN
     Route: 048
  3. ANTIHYPERTENSIVE [Concomitant]
     Indication: HYPERTENSION
     Dosage: DOSAGE UNKNOWN
     Route: 048

REACTIONS (2)
  - AMNESIA [None]
  - ANEURYSM [None]
